FAERS Safety Report 23469459 (Version 2)
Quarter: 2024Q1

REPORT INFORMATION
  Report Type: Report from Study
  Country: US (occurrence: US)
  Receive Date: 20240202
  Receipt Date: 20240203
  Transmission Date: 20240410
  Serious: Yes (Death)
  Sender: FDA-Public Use
  Company Number: US-ABBVIE-5619683

PATIENT
  Age: 78 Year
  Sex: Male
  Weight: 113.39 kg

DRUGS (1)
  1. HUMIRA [Suspect]
     Active Substance: ADALIMUMAB
     Indication: Rheumatoid arthritis
     Dosage: CITRATE FREE, FORM STRENGTH: 40 MILLIGRAMS
     Route: 058
     Dates: start: 20120203

REACTIONS (2)
  - Fall [Fatal]
  - Accident [Fatal]

NARRATIVE: CASE EVENT DATE: 20231216
